FAERS Safety Report 18444911 (Version 2)
Quarter: 2021Q2

REPORT INFORMATION
  Report Type: Report from Study
  Country: TR (occurrence: TR)
  Receive Date: 20201030
  Receipt Date: 20210506
  Transmission Date: 20210717
  Serious: Yes (Hospitalization)
  Sender: FDA-Public Use
  Company Number: TR-SAKK-2019SA009667AA

PATIENT
  Age: 70 Year
  Sex: Male
  Weight: 85 kg

DRUGS (27)
  1. DEXAMETHASONE. [Suspect]
     Active Substance: DEXAMETHASONE
     Indication: PLASMA CELL MYELOMA
     Dosage: 10 MG
     Route: 065
  2. LOSEC [Concomitant]
     Active Substance: OMEPRAZOLE
     Indication: PROPHYLAXIS
     Dosage: 40 MG, 1X
     Route: 042
     Dates: start: 20181228, end: 20181228
  3. CRAVIT [Concomitant]
     Active Substance: LEVOFLOXACIN
     Indication: PROPHYLAXIS
     Dosage: UNK, UNK
     Route: 048
     Dates: start: 20181214, end: 20190823
  4. URIKOLIZ [Concomitant]
     Active Substance: ALLOPURINOL
     Indication: PROPHYLAXIS
     Dosage: UNK, UNK
     Route: 048
     Dates: start: 20181102, end: 20190823
  5. DEXAMETHASONE. [Suspect]
     Active Substance: DEXAMETHASONE
     Dosage: 10 MG, QW
     Route: 042
     Dates: start: 20181102, end: 20181102
  6. BORTEZOMIB. [Suspect]
     Active Substance: BORTEZOMIB
     Indication: PLASMA CELL MYELOMA
     Dosage: 1.3 MG/M2, OTHER
     Route: 058
     Dates: start: 20190107, end: 20190107
  7. SINGULAIR [Concomitant]
     Active Substance: MONTELUKAST SODIUM
     Indication: PROPHYLAXIS
     Dosage: 10 MG, 1X
     Route: 048
     Dates: start: 20181228, end: 20181228
  8. CLEXAN [Concomitant]
     Active Substance: ENOXAPARIN SODIUM
     Indication: PROPHYLAXIS
     Dosage: UNK, UNK
     Route: 058
     Dates: start: 20160926, end: 20190108
  9. SANELOC [Concomitant]
     Active Substance: METOPROLOL
     Dosage: UNK, UNK
     Route: 048
     Dates: start: 2013
  10. BACTRIM [Concomitant]
     Active Substance: SULFAMETHOXAZOLE\TRIMETHOPRIM
     Indication: PROPHYLAXIS
     Dosage: UNK, UNK
     Route: 048
     Dates: start: 20181102, end: 20190315
  11. NETIRA [Concomitant]
     Dosage: UNK UNK, UNK
     Route: 047
     Dates: start: 201803
  12. ISATUXIMAB [Suspect]
     Active Substance: ISATUXIMAB
     Indication: PLASMA CELL MYELOMA
     Dosage: 10 MG/KG, QOW
     Route: 042
     Dates: start: 20181228, end: 20181228
  13. PAROL [Concomitant]
     Active Substance: ACETAMINOPHEN
     Indication: PROPHYLAXIS
     Dosage: 1000 MG, 1X
     Route: 048
     Dates: start: 20181228, end: 20181228
  14. KINZY [Concomitant]
     Dosage: UNK, UNK
     Route: 048
     Dates: start: 2016
  15. ISATUXIMAB [Suspect]
     Active Substance: ISATUXIMAB
     Dosage: 10 MG/KG, QW
     Route: 042
     Dates: start: 20181102, end: 20181102
  16. BORTEZOMIB. [Suspect]
     Active Substance: BORTEZOMIB
     Dosage: 1.3 MG/M2, OTHER
     Route: 058
     Dates: start: 20181102, end: 20181102
  17. TARDEN [Concomitant]
     Dosage: UNK, UNK
     Route: 048
     Dates: start: 20170926
  18. XATRAL [ALFUZOSIN] [Concomitant]
     Dosage: UNK UNK, UNK
     Route: 048
     Dates: start: 2016
  19. LENALIDOMIDE [Suspect]
     Active Substance: LENALIDOMIDE
     Indication: PLASMA CELL MYELOMA
     Dosage: 25 MG, QD
     Route: 048
  20. AVIL [PHENIRAMINE MALEATE] [Concomitant]
     Indication: PROPHYLAXIS
     Dosage: 45.5 MG, 1X
     Route: 042
     Dates: start: 20181228, end: 20181228
  21. AUGMENTIN [Concomitant]
     Active Substance: AMOXICILLIN\CLAVULANATE POTASSIUM
     Dosage: UNK, UNK
     Route: 048
     Dates: start: 20190104, end: 20190108
  22. LENALIDOMIDE [Suspect]
     Active Substance: LENALIDOMIDE
     Dosage: 10 MG, QD
     Route: 048
     Dates: start: 20181102, end: 20181108
  23. VALTREX [Concomitant]
     Active Substance: VALACYCLOVIR HYDROCHLORIDE
     Indication: PROPHYLAXIS
     Dosage: UNK UNK, UNK
     Route: 048
     Dates: start: 20181102, end: 20190823
  24. LANSOR [Concomitant]
     Active Substance: LANSOPRAZOLE
     Indication: PROPHYLAXIS
     Dosage: UNK, UNK
     Route: 048
     Dates: start: 20181102
  25. LASIX [Concomitant]
     Active Substance: FUROSEMIDE
     Dosage: UNK, UNK
     Route: 048
     Dates: start: 20170926
  26. LERCADIP [LERCANIDIPINE HYDROCHLORIDE] [Concomitant]
     Dosage: UNK, UNK
     Route: 048
     Dates: start: 2015
  27. LIPOTEARS [Concomitant]
     Dosage: UNK UNK, UNK
     Route: 047
     Dates: start: 201803

REACTIONS (1)
  - Pneumocystis jirovecii pneumonia [Recovered/Resolved]

NARRATIVE: CASE EVENT DATE: 20190109
